FAERS Safety Report 14510653 (Version 4)
Quarter: 2018Q2

REPORT INFORMATION
  Report Type: Report from Study
  Country: US (occurrence: US)
  Receive Date: 20180209
  Receipt Date: 20180516
  Transmission Date: 20180711
  Serious: Yes (Hospitalization, Other)
  Sender: FDA-Public Use
  Company Number: US-GILEAD-2018-0318302

PATIENT
  Age: 66 Year
  Sex: Male

DRUGS (4)
  1. REVATIO [Concomitant]
     Active Substance: SILDENAFIL CITRATE
  2. REMODULIN [Concomitant]
     Active Substance: TREPROSTINIL
  3. AMBRISENTAN [Suspect]
     Active Substance: AMBRISENTAN
     Indication: PRODUCT USED FOR UNKNOWN INDICATION
     Dosage: 10 MG, QD
     Route: 065
     Dates: start: 20130212
  4. XARELTO [Concomitant]
     Active Substance: RIVAROXABAN

REACTIONS (4)
  - Internal haemorrhage [Unknown]
  - Arthralgia [Unknown]
  - Dyspnoea [Unknown]
  - Musculoskeletal chest pain [Not Recovered/Not Resolved]
